FAERS Safety Report 4827867-7 (Version None)
Quarter: 2005Q4

REPORT INFORMATION
  Report Type: 
  Country: None (occurrence: None)
  Receive Date: 20051110
  Receipt Date: 20051028
  Transmission Date: 20060501
  Serious: Yes (Hospitalization)
  Sender: FDA-Public Use
  Company Number: 2005BI016362

PATIENT
  Age: 45 Year
  Sex: Female

DRUGS (6)
  1. AVONEX [Suspect]
     Indication: MULTIPLE SCLEROSIS
     Dosage: 30 UG; QW; IM
     Route: 030
     Dates: start: 20030528, end: 20030724
  2. AVONEX [Suspect]
     Indication: MULTIPLE SCLEROSIS
     Dosage: 30 UG; QW; IM
     Route: 030
     Dates: start: 20030820
  3. MOM [Concomitant]
  4. BENADRYL [Concomitant]
  5. EX-LAX [Concomitant]
  6. MELATONIN [Concomitant]

REACTIONS (4)
  - CEREBROVASCULAR DISORDER [None]
  - DYSPHAGIA [None]
  - PROGRESSIVE MULTIPLE SCLEROSIS [None]
  - RESPIRATORY FAILURE [None]
